FAERS Safety Report 6825089-1 (Version None)
Quarter: 2010Q3

REPORT INFORMATION
  Report Type: 
  Country: None (occurrence: None)
  Receive Date: 20100708
  Receipt Date: 20070202
  Transmission Date: 20110219
  Serious: Yes (Other)
  Sender: FDA-Public Use
  Company Number: US-PFIZER INC-2006143246

PATIENT
  Sex: Female
  Weight: 52.2 kg

DRUGS (8)
  1. CHANTIX [Suspect]
     Indication: SMOKING CESSATION THERAPY
     Dates: start: 20061106, end: 20061115
  2. CALCIUM CARBONATE [Concomitant]
     Dosage: 1200MG TO 1800MG
  3. MELATONIN [Concomitant]
  4. MULTI-VITAMINS [Concomitant]
  5. VITAMIN E [Concomitant]
  6. NEURONTIN [Concomitant]
     Dosage: 400MG AM AND 600MG PM,DAY
  7. CYMBALTA [Concomitant]
  8. ALL OTHER THERAPEUTIC PRODUCTS [Concomitant]
     Indication: PAIN

REACTIONS (5)
  - ABNORMAL DREAMS [None]
  - DYSPEPSIA [None]
  - FOOT FRACTURE [None]
  - NIGHTMARE [None]
  - SUICIDAL IDEATION [None]
